FAERS Safety Report 7212751-4 (Version None)
Quarter: 2011Q1

REPORT INFORMATION
  Report Type: 
  Country: None (occurrence: None)
  Receive Date: 20110106
  Receipt Date: 20110104
  Transmission Date: 20110831
  Serious: Yes (Hospitalization)
  Sender: FDA-Public Use
  Company Number: NL-ROCHE-745992

PATIENT
  Sex: Female

DRUGS (6)
  1. BEVACIZUMAB [Suspect]
     Dosage: LAST DOSE PRIOR TO SAE: 22 NOVEMBER 2010
     Route: 042
     Dates: start: 20090924
  2. PACLITAXEL [Suspect]
     Dosage: LAST DOSE PRIOR TO SAE: 29 OCTOBER 2010. TEMPORARILY DISCONTINUED.
     Route: 042
     Dates: start: 20091029
  3. MORPHINE [Concomitant]
     Dosage: DRUG: MORPHINE (DRINK).
  4. TRASTUZUMAB [Suspect]
     Dosage: LAST DOSE PRIOR TO SAE: 22 NOVEMBER 2010, LOADING DOSE: 500 MG
     Route: 042
     Dates: start: 20090903
  5. HYDROCHLOROTHIAZIDE [Concomitant]
  6. PARACETAMOL [Concomitant]

REACTIONS (6)
  - PNEUMONIA [None]
  - ORAL PAIN [None]
  - MALAISE [None]
  - DIARRHOEA [None]
  - DYSPNOEA [None]
  - CHEST PAIN [None]
